FAERS Safety Report 4787238-9 (Version None)
Quarter: 2005Q4

REPORT INFORMATION
  Report Type: 
  Country: None (occurrence: None)
  Receive Date: 20051004
  Receipt Date: 20050928
  Transmission Date: 20060501
  Serious: Yes (Death, Other)
  Sender: FDA-Public Use
  Company Number: PHBS2005AU14300

PATIENT
  Age: 56 Year
  Sex: Female

DRUGS (8)
  1. BACLOFEN [Suspect]
     Indication: MUSCLE SPASTICITY
     Route: 048
  2. BACLOFEN [Suspect]
     Indication: MUSCLE SPASTICITY
     Dosage: 25 TO 100 MCG/DAY
     Route: 037
  3. MIDAZOLAM [Concomitant]
  4. DANTROLENE [Concomitant]
  5. BOTULINUM TOXIN TYPE A [Concomitant]
  6. ANAESTHETICS [Concomitant]
  7. STEROIDS NOS [Concomitant]
  8. MORPHINE [Suspect]
     Route: 037

REACTIONS (10)
  - CONFUSIONAL STATE [None]
  - DYSARTHRIA [None]
  - DYSPHAGIA [None]
  - GLIOSIS [None]
  - LOWER MOTOR NEURONE LESION [None]
  - MOTOR NEURONE DISEASE [None]
  - MUSCLE SPASTICITY [None]
  - PROCTALGIA [None]
  - SOMNOLENCE [None]
  - UPPER MOTOR NEURONE LESION [None]
